FAERS Safety Report 20581497 (Version 1)
Quarter: 2022Q1

REPORT INFORMATION
  Report Type: Spontaneous
  Country: IT (occurrence: IT)
  Receive Date: 20220311
  Receipt Date: 20220311
  Transmission Date: 20220423
  Serious: Yes (Other)
  Sender: FDA-Public Use
  Company Number: IT-STRIDES ARCOLAB LIMITED-2022SP002366

PATIENT
  Age: 38 Year
  Sex: Female
  Weight: 80 kg

DRUGS (17)
  1. DEXAMETHASONE [Suspect]
     Active Substance: DEXAMETHASONE
     Indication: COVID-19
     Dosage: 6 MILLIGRAM PER DAY
     Route: 065
     Dates: start: 2021, end: 2021
  2. DEXAMETHASONE [Suspect]
     Active Substance: DEXAMETHASONE
     Dosage: 5 MILLIGRAM PER DAY
     Route: 065
     Dates: start: 2021, end: 2021
  3. DEXAMETHASONE [Suspect]
     Active Substance: DEXAMETHASONE
     Dosage: 1 MILLIGRAM PE DAY EACH OF THE 3 DAYS
     Route: 065
     Dates: start: 2021
  4. CEFDITOREN [Concomitant]
     Active Substance: CEFDITOREN
     Indication: COVID-19
     Dosage: 800 MILLIGRAM PER DAY
     Route: 065
     Dates: start: 2021
  5. ENOXAPARIN [Concomitant]
     Active Substance: ENOXAPARIN
     Indication: Drug therapy
     Dosage: 16000 U PER DAY
     Route: 065
     Dates: start: 2021
  6. ENOXAPARIN [Concomitant]
     Active Substance: ENOXAPARIN
     Dosage: 8000 U PER DAY
     Route: 065
     Dates: start: 2021
  7. FAMOTIDINE [Concomitant]
     Active Substance: FAMOTIDINE
     Indication: Drug therapy
     Dosage: 40 MILLIGRAM PER DAY
     Route: 065
     Dates: start: 2021
  8. POTASSIUM CHLORIDE [Concomitant]
     Active Substance: POTASSIUM CHLORIDE
     Indication: Drug therapy
     Dosage: 600 MILLIGRAM PER DAY
     Route: 065
     Dates: start: 2021
  9. VITAMIN D NOS [Concomitant]
     Active Substance: VITAMIN D NOS
     Indication: Drug therapy
     Dosage: 50000 U PER DAY
     Route: 065
     Dates: start: 2021
  10. VITAMIN D NOS [Concomitant]
     Active Substance: VITAMIN D NOS
     Dosage: 10000 U
     Route: 065
     Dates: start: 2021
  11. MENAQUINONE [Concomitant]
     Indication: Drug therapy
     Dosage: 0.1 MILLIGRAM PER DAY
     Route: 065
     Dates: start: 2021
  12. VITAMIN C [Concomitant]
     Active Substance: ASCORBIC ACID
     Indication: Drug therapy
     Dosage: 3 GRAM PER DAY
     Route: 065
     Dates: start: 2021
  13. ZINC PIDOLATE [Concomitant]
     Active Substance: ZINC PIDOLATE
     Indication: Drug therapy
     Dosage: 12.5 MILLIGRAM PER DAY
     Route: 065
     Dates: start: 2021
  14. QUERCETIN [Concomitant]
     Active Substance: QUERCETIN
     Indication: Drug therapy
     Dosage: 200 MILLIGRAM PER DAY
     Route: 065
     Dates: start: 2021
  15. LACTOFERRIN [Concomitant]
     Active Substance: LACTOFERRIN
     Indication: Drug therapy
     Dosage: 200 MILLIGRAM PER DAY
     Route: 065
     Dates: start: 2021
  16. POLYDATIN [Concomitant]
     Active Substance: POLYDATIN
     Indication: Drug therapy
     Dosage: 160 MILLIGRAM PER DAY
     Route: 065
     Dates: start: 2021
  17. VITAMIN B12 [Concomitant]
     Active Substance: CYANOCOBALAMIN
     Indication: Drug therapy
     Dosage: 0.05 MILLIGRAM PER DAY
     Route: 065
     Dates: start: 2021

REACTIONS (5)
  - Hypothalamic pituitary adrenal axis suppression [Recovered/Resolved]
  - Psychotic disorder [Unknown]
  - Post-acute COVID-19 syndrome [Recovered/Resolved]
  - Adrenal insufficiency [Recovered/Resolved]
  - Off label use [Unknown]

NARRATIVE: CASE EVENT DATE: 20210101
